FAERS Safety Report 12636410 (Version 1)
Quarter: 2016Q3

REPORT INFORMATION
  Report Type: Spontaneous
  Country: JP (occurrence: JP)
  Receive Date: 20160809
  Receipt Date: 20160809
  Transmission Date: 20161109
  Serious: Yes (Life-Threatening, Hospitalization)
  Sender: FDA-Public Use
  Company Number: JP-ACCORD-042972

PATIENT
  Age: 62 Year
  Sex: Male

DRUGS (6)
  1. IRINOTECAN [Suspect]
     Active Substance: IRINOTECAN
     Indication: PANCREATIC CARCINOMA
     Dosage: DOSE ADMITTED 65% DOSE AS 150 MG/BODY
  2. OXALIPLATIN. [Suspect]
     Active Substance: OXALIPLATIN
     Indication: PANCREATIC CARCINOMA
     Dosage: 65% OF DOSE AS 85MG/BODY,
  3. CALCIUM LEVOFOLINATE [Suspect]
     Active Substance: LEVOLEUCOVORIN CALCIUM
     Indication: PANCREATIC CARCINOMA
  4. GEMCITABINE/GEMCITABINE HYDROCHLORIDE [Suspect]
     Active Substance: GEMCITABINE\GEMCITABINE HYDROCHLORIDE
     Indication: PANCREATIC CARCINOMA
     Dosage: 14 COURSES WAS PERFORMED
  5. PACLITAXEL/PACLITAXEL LIPOSOME [Suspect]
     Active Substance: PACLITAXEL
     Indication: PANCREATIC CARCINOMA
     Dosage: 3 WEEKS ADMINISTRATION WITH 1 WEEK REST DRUG??NAB-PACLITAXEL
  6. FLUOROURACIL. [Suspect]
     Active Substance: FLUOROURACIL
     Indication: PANCREATIC CARCINOMA
     Dosage: (BOLUS) 400 MG/M2, (CONTINUOUS INFUSION) 2,400 MG/M2 WAS INITIATED IN THE STANDARD THERAPEUTIC DOSE

REACTIONS (3)
  - Febrile neutropenia [Recovered/Resolved]
  - Gait disturbance [Unknown]
  - Neutropenia [Unknown]

NARRATIVE: CASE EVENT DATE: 201509
